FAERS Safety Report 6863485-7 (Version None)
Quarter: 2010Q3

REPORT INFORMATION
  Report Type: 
  Country: None (occurrence: None)
  Receive Date: 20100721
  Receipt Date: 20100709
  Transmission Date: 20110219
  Serious: Yes (Hospitalization, Other)
  Sender: FDA-Public Use
  Company Number: US-PFIZER INC-2010086822

PATIENT
  Sex: Female
  Weight: 90.703 kg

DRUGS (15)
  1. CHANTIX [Suspect]
     Indication: SMOKING CESSATION THERAPY
     Dosage: 1 MG, 2X/DAY
     Route: 048
     Dates: start: 20080101
  2. GLYBURIDE [Concomitant]
     Indication: DIABETES MELLITUS
     Dosage: 5 MG, 2X/DAY
     Dates: start: 19990101
  3. LASIX [Concomitant]
     Indication: CARDIAC FAILURE CONGESTIVE
     Dosage: 20 MG, 1X/DAY
     Route: 048
  4. SULAR [Concomitant]
     Indication: HYPERTENSION
     Dosage: 8.5 MG, 1X/DAY
     Route: 048
  5. LEXAPRO [Concomitant]
     Indication: DEPRESSION
     Dosage: 20 MG, 1X/DAY
     Route: 048
  6. ADDERALL 10 [Concomitant]
     Indication: ATTENTION DEFICIT/HYPERACTIVITY DISORDER
     Dosage: 10 MG, 2X/DAY
     Route: 048
  7. LORTAB [Concomitant]
     Indication: FIBROMYALGIA
     Dosage: 10/500MG
     Route: 048
  8. PREDNISONE [Concomitant]
     Indication: DYSPNOEA
     Dosage: 20 MG, UNK
  9. BENICAR [Concomitant]
     Indication: HYPERTENSION
     Dosage: 12.5 MG, 1X/DAY
     Route: 048
  10. PREMARIN [Concomitant]
     Indication: HYSTERECTOMY
     Dosage: 0.65 MG, 1X/DAY
     Route: 048
  11. SULINDAC [Concomitant]
     Indication: MUSCLE SPASMS
     Dosage: 200 MG, 1X/DAY
  12. SEROQUEL [Concomitant]
     Indication: BIPOLAR DISORDER
     Dosage: 50 MG, 1X/DAY
     Route: 048
  13. AMBIEN [Concomitant]
     Indication: SLEEP DISORDER
     Dosage: 10 MG, 1X/DAY
     Route: 048
  14. OXYGEN [Concomitant]
     Indication: SLEEP APNOEA SYNDROME
     Dosage: UNK
  15. MONTELUKAST SODIUM [Concomitant]
     Indication: DYSPNOEA
     Dosage: 10 MG, 1X/DAY
     Route: 048

REACTIONS (6)
  - ARTERIAL OCCLUSIVE DISEASE [None]
  - COMA [None]
  - IMPLANTABLE DEFIBRILLATOR INSERTION [None]
  - MEMORY IMPAIRMENT [None]
  - RESPIRATORY ARREST [None]
  - URINARY TRACT INFECTION [None]
